FAERS Safety Report 13163210 (Version 5)
Quarter: 2017Q4

REPORT INFORMATION
  Report Type: Spontaneous
  Country: IT (occurrence: IT)
  Receive Date: 20170130
  Receipt Date: 20171018
  Transmission Date: 20180320
  Serious: Yes (Hospitalization)
  Sender: FDA-Public Use
  Company Number: IT-SA-2017SA011473

PATIENT
  Age: 55 Year
  Sex: Female
  Weight: 50 kg

DRUGS (9)
  1. TRIMETON [Concomitant]
     Active Substance: CHLORPHENIRAMINE MALEATE
     Indication: PREMEDICATION
     Dosage: TRIMETON 1 VIAL
     Route: 065
  2. DELTACORTENE [Concomitant]
     Active Substance: PREDNISONE
     Route: 065
  3. LEMTRADA [Suspect]
     Active Substance: ALEMTUZUMAB
     Indication: MULTIPLE SCLEROSIS
     Route: 041
     Dates: start: 20161219, end: 20161223
  4. SOLU-MEDROL [Concomitant]
     Active Substance: METHYLPREDNISOLONE SODIUM SUCCINATE
     Indication: PREMEDICATION
     Route: 065
  5. LANSOPRAZOLE. [Concomitant]
     Active Substance: LANSOPRAZOLE
     Dosage: 30 MG 1 TABLET IN THE MORNING
     Route: 065
  6. DIAZEPAM. [Concomitant]
     Active Substance: DIAZEPAM
     Dosage: DIAZEPAM 1 FL AT 250 TO 150 CC/H
     Route: 065
  7. PARACETAMOL [Concomitant]
     Active Substance: ACETAMINOPHEN
     Indication: PREMEDICATION
     Route: 065
  8. ACYCLOVIR. [Concomitant]
     Active Substance: ACYCLOVIR
     Dosage: CONTINUES WITH ACYCLOVIR 200 MG 1 TABLET X 2 FOR A MONTH.
     Route: 065
  9. PANTOPRAZOLE [Concomitant]
     Active Substance: PANTOPRAZOLE
     Dosage: 1 VIAL
     Route: 065

REACTIONS (16)
  - Status epilepticus [Unknown]
  - Lymphocyte count decreased [Not Recovered/Not Resolved]
  - Brain abscess [Unknown]
  - Aphasia [Recovering/Resolving]
  - White blood cell count increased [Unknown]
  - Blood fibrinogen increased [Unknown]
  - Epilepsy [Unknown]
  - Asthenia [Unknown]
  - Hemiparesis [Recovering/Resolving]
  - Neutrophil count increased [Unknown]
  - Condition aggravated [Unknown]
  - Monocyte count increased [Unknown]
  - Brain compression [Unknown]
  - Haemoglobin decreased [Unknown]
  - Platelet count increased [Unknown]
  - Blood pressure increased [Unknown]

NARRATIVE: CASE EVENT DATE: 20170115
